FAERS Safety Report 20698401 (Version 12)
Quarter: 2025Q1

REPORT INFORMATION
  Report Type: Report from Study
  Country: DE (occurrence: DE)
  Receive Date: 20220412
  Receipt Date: 20250205
  Transmission Date: 20250409
  Serious: Yes (Hospitalization, Other)
  Sender: ROCHE
  Company Number: DE-ROCHE-2308884

PATIENT
  Age: 50 Year
  Sex: Female

DRUGS (18)
  1. OCREVUS [Suspect]
     Active Substance: OCRELIZUMAB
     Indication: Secondary progressive multiple sclerosis
     Route: 040
     Dates: start: 20190423
  2. OCREVUS [Suspect]
     Active Substance: OCRELIZUMAB
     Indication: Primary progressive multiple sclerosis
     Route: 040
     Dates: start: 20190508
  3. OCREVUS [Suspect]
     Active Substance: OCRELIZUMAB
     Route: 040
     Dates: start: 20191106
  4. OCREVUS [Suspect]
     Active Substance: OCRELIZUMAB
     Route: 040
  5. OCREVUS [Suspect]
     Active Substance: OCRELIZUMAB
     Dosage: 600 MG IN 279 DAYS
     Route: 040
     Dates: start: 20190423
  6. OCREVUS [Suspect]
     Active Substance: OCRELIZUMAB
     Route: 040
     Dates: start: 20200806
  7. OCREVUS [Suspect]
     Active Substance: OCRELIZUMAB
     Route: 040
  8. COMIRNATY (TOZINAMERAN) [Suspect]
     Active Substance: TOZINAMERAN
     Indication: COVID-19 prophylaxis
     Route: 065
     Dates: end: 20210512
  9. COMIRNATY (TOZINAMERAN) [Suspect]
     Active Substance: TOZINAMERAN
     Route: 065
     Dates: start: 20210623, end: 20210623
  10. MIRABEGRON [Concomitant]
     Active Substance: MIRABEGRON
  11. VESIKUR [Concomitant]
     Active Substance: SOLIFENACIN SUCCINATE
  12. LIORESAL [Concomitant]
     Active Substance: BACLOFEN
  13. OPIPRAMOL HYDROCHLORIDE [Concomitant]
     Active Substance: OPIPRAMOL HYDROCHLORIDE
  14. HYDROCORTISONE [Concomitant]
     Active Substance: HYDROCORTISONE
  15. VESICARE [Concomitant]
     Active Substance: SOLIFENACIN SUCCINATE
  16. PFIZER-BIONTECH COVID-19 VACCINE [Concomitant]
     Active Substance: TOZINAMERAN
  17. ARNICA MONTANA FLOWER [Concomitant]
     Active Substance: ARNICA MONTANA FLOWER
  18. ERYTHROMYCIN [Concomitant]
     Active Substance: ERYTHROMYCIN

REACTIONS (44)
  - Off label use [Unknown]
  - Body temperature increased [Recovered/Resolved]
  - Fatigue [Not Recovered/Not Resolved]
  - Nasopharyngitis [Recovered/Resolved]
  - Cystitis [Recovered/Resolved]
  - Gastrointestinal infection [Recovered/Resolved]
  - Depression [Not Recovered/Not Resolved]
  - Tearfulness [Not Recovered/Not Resolved]
  - Muscular weakness [Not Recovered/Not Resolved]
  - Pain in extremity [Not Recovered/Not Resolved]
  - Pain [Recovered/Resolved]
  - Multiple sclerosis [Recovered/Resolved]
  - Gastrointestinal motility disorder [Recovering/Resolving]
  - Joint instability [Not Recovered/Not Resolved]
  - Arthralgia [Not Recovered/Not Resolved]
  - Visual impairment [Recovering/Resolving]
  - Intervertebral disc protrusion [Not Recovered/Not Resolved]
  - T-lymphocyte count decreased [Recovered/Resolved]
  - Cardiovascular disorder [Recovered/Resolved]
  - Nausea [Recovered/Resolved]
  - Retching [Recovered/Resolved]
  - SARS-CoV-2 antibody test negative [Not Recovered/Not Resolved]
  - Muscle spasticity [Not Recovered/Not Resolved]
  - Alopecia [Not Recovered/Not Resolved]
  - Acne [Recovered/Resolved]
  - Scar inflammation [Recovered/Resolved]
  - Haemangioma [Recovered/Resolved]
  - COVID-19 [Recovered/Resolved]
  - Headache [Recovered/Resolved]
  - Dizziness [Recovered/Resolved]
  - Melanocytic naevus [Not Recovered/Not Resolved]
  - B-lymphocyte count decreased [Not Recovered/Not Resolved]
  - Gastritis [Recovered/Resolved]
  - Peripheral swelling [Not Recovered/Not Resolved]
  - Arthralgia [Recovered/Resolved]
  - Milia [Recovered/Resolved]
  - Lipoma [Recovered/Resolved]
  - Liver function test increased [Recovered/Resolved]
  - Micturition urgency [Recovered/Resolved]
  - Hypoaesthesia [Recovering/Resolving]
  - Osteopenia [Not Recovered/Not Resolved]
  - Osteoarthritis [Recovering/Resolving]
  - Weight decreased [Recovered/Resolved]
  - Rash [Not Recovered/Not Resolved]

NARRATIVE: CASE EVENT DATE: 20190423
